FAERS Safety Report 10008385 (Version 2)
Quarter: 2014Q1

REPORT INFORMATION
  Report Type: Spontaneous
  Country: US (occurrence: US)
  Receive Date: 20140313
  Receipt Date: 20140313
  Transmission Date: 20141002
  Serious: Yes (Other)
  Sender: FDA-Public Use
  Company Number: US-GILEAD-2013-0077384

PATIENT
  Sex: Female

DRUGS (2)
  1. LETAIRIS [Suspect]
     Indication: PULMONARY HYPERTENSION
     Dosage: 10 MG, UNK
     Route: 048
     Dates: start: 20130424
  2. LETAIRIS [Suspect]
     Indication: CONNECTIVE TISSUE DISORDER

REACTIONS (8)
  - Right ventricular failure [Recovering/Resolving]
  - Oedema [Recovering/Resolving]
  - Dysphemia [Unknown]
  - Paraesthesia [Unknown]
  - Unevaluable event [Unknown]
  - Fall [Unknown]
  - Loss of consciousness [Recovering/Resolving]
  - Dizziness [Unknown]
